FAERS Safety Report 6474314-8 (Version None)
Quarter: 2009Q4

REPORT INFORMATION
  Report Type: 
  Country: None (occurrence: None)
  Receive Date: 20091204
  Receipt Date: 20091202
  Transmission Date: 20100525
  Serious: Yes (Other)
  Sender: FDA-Public Use
  Company Number: PHEH2009US14316

PATIENT
  Sex: Female

DRUGS (2)
  1. FEMARA [Suspect]
     Dosage: 2.5 MG, QD
     Dates: start: 20050401
  2. FEMARA [Suspect]
     Dosage: 2.5MG/DAY 4X/WEEK
     Dates: end: 20091006

REACTIONS (1)
  - UTERINE DISORDER [None]
